FAERS Safety Report 6945052-X (Version None)
Quarter: 2010Q3

REPORT INFORMATION
  Report Type: 
  Country: None (occurrence: None)
  Receive Date: 20100827
  Receipt Date: 20100817
  Transmission Date: 20110219
  Serious: Yes (Hospitalization)
  Sender: FDA-Public Use
  Company Number: PHHY2010JP24879

PATIENT
  Age: 83 Year
  Sex: Female

DRUGS (1)
  1. TEGRETOL [Suspect]
     Indication: TRIGEMINAL NEURALGIA
     Dosage: 300 MG, UNK
     Route: 048
     Dates: start: 20090421, end: 20100413

REACTIONS (3)
  - DIZZINESS [None]
  - HEART RATE DECREASED [None]
  - SINUS BRADYCARDIA [None]
